FAERS Safety Report 23718199 (Version 2)
Quarter: 2024Q2

REPORT INFORMATION
  Report Type: Spontaneous
  Country: US (occurrence: US)
  Receive Date: 20240408
  Receipt Date: 20240429
  Transmission Date: 20240716
  Serious: Yes (Hospitalization, Other)
  Sender: FDA-Public Use
  Company Number: US-BRISTOL-MYERS SQUIBB COMPANY-2024-052035

PATIENT
  Age: 68 Year
  Sex: Male

DRUGS (1)
  1. REVLIMID [Suspect]
     Active Substance: LENALIDOMIDE
     Indication: Follicular lymphoma
     Dosage: TAKE 1 WHOLE CAPSULE BY MOUTH EVERY DAY ON DAYS 1-21 FOLLOWED BY 7 DAYS OFF
     Route: 048

REACTIONS (5)
  - COVID-19 pneumonia [Recovered/Resolved]
  - Fall [Recovered/Resolved]
  - Shoulder fracture [Recovered/Resolved]
  - Product dose omission issue [Unknown]
  - Rash [Recovering/Resolving]
